FAERS Safety Report 14978863 (Version 3)
Quarter: 2018Q4

REPORT INFORMATION
  Report Type: Report from Study
  Country: US (occurrence: US)
  Receive Date: 20180606
  Receipt Date: 20181012
  Transmission Date: 20190204
  Serious: Yes (Other)
  Sender: FDA-Public Use
  Company Number: PHEH2018US021991

PATIENT
  Sex: Male
  Weight: 72.56 kg

DRUGS (3)
  1. COSENTYX [Suspect]
     Active Substance: SECUKINUMAB
     Indication: ANKYLOSING SPONDYLITIS
     Dosage: 300 MG, QMO
     Route: 058
     Dates: start: 201804
  2. FLU VACCINE VII [Suspect]
     Active Substance: INFLUENZA VIRUS VACCINE
     Indication: PRODUCT USED FOR UNKNOWN INDICATION
     Dosage: UNK
     Route: 065
     Dates: start: 20180915
  3. COSENTYX [Suspect]
     Active Substance: SECUKINUMAB
     Indication: PSORIATIC ARTHROPATHY
     Dosage: UNK UNK, QMO
     Route: 065
     Dates: start: 20180918

REACTIONS (8)
  - Pain in extremity [Unknown]
  - Headache [Unknown]
  - Angiopathy [Unknown]
  - Somnolence [Unknown]
  - Bruxism [Unknown]
  - Cerebral haemorrhage [Unknown]
  - Pain [Unknown]
  - Carpal tunnel syndrome [Unknown]
